FAERS Safety Report 7156876-0 (Version None)
Quarter: 2010Q4

REPORT INFORMATION
  Report Type: 
  Country: None (occurrence: None)
  Receive Date: 20101214
  Receipt Date: 20101208
  Transmission Date: 20110411
  Serious: Yes (Other)
  Sender: FDA-Public Use
  Company Number: JP-PFIZER INC-2010134533

PATIENT
  Sex: Female

DRUGS (4)
  1. LIPITOR [Suspect]
     Dosage: 10 MG, 1X/DAY
     Route: 048
     Dates: start: 20100921, end: 20101027
  2. ACTOS [Concomitant]
     Route: 048
  3. GLYBURIDE [Concomitant]
     Route: 048
  4. BASEN [Concomitant]
     Route: 048

REACTIONS (1)
  - CHROMATURIA [None]
